FAERS Safety Report 6818447-2 (Version None)
Quarter: 2010Q3

REPORT INFORMATION
  Report Type: 
  Country: None (occurrence: None)
  Receive Date: 20100706
  Receipt Date: 20080811
  Transmission Date: 20110219
  Serious: No
  Sender: FDA-Public Use
  Company Number: US-PFIZER INC-2008067520

PATIENT
  Sex: Male

DRUGS (4)
  1. ZITHROMAX [Suspect]
  2. BUSPIRONE HYDROCHLORIDE [Suspect]
  3. UROXATRAL [Suspect]
     Route: 048
  4. AUGMENTIN '125' [Suspect]

REACTIONS (1)
  - SOMNOLENCE [None]
